FAERS Safety Report 25209256 (Version 1)
Quarter: 2025Q2

REPORT INFORMATION
  Report Type: Spontaneous
  Country: US (occurrence: US)
  Receive Date: 20250417
  Receipt Date: 20250417
  Transmission Date: 20250716
  Serious: No
  Sender: SANOFI AVENTIS
  Company Number: US-SA-2025SA109911

PATIENT
  Age: 58 Year
  Sex: Male

DRUGS (4)
  1. MULTAQ [Suspect]
     Active Substance: DRONEDARONE
     Indication: Atrial fibrillation
     Dosage: 1 DF, BID
     Route: 048
  2. MULTAQ [Suspect]
     Active Substance: DRONEDARONE
     Indication: Atrial flutter
  3. MULTAQ [Suspect]
     Active Substance: DRONEDARONE
     Indication: Cardiac failure congestive
  4. MULTAQ [Suspect]
     Active Substance: DRONEDARONE
     Indication: Ventricular tachycardia

REACTIONS (1)
  - Off label use [Unknown]
